FAERS Safety Report 15030504 (Version 2)
Quarter: 2018Q2

REPORT INFORMATION
  Report Type: Spontaneous
  Country: RU (occurrence: RU)
  Receive Date: 20180619
  Receipt Date: 20180628
  Transmission Date: 20180711
  Serious: Yes (Other)
  Sender: FDA-Public Use
  Company Number: RU-ASTRAZENECA-2017SE29010

PATIENT
  Age: 69 Year
  Sex: Male
  Weight: 85 kg

DRUGS (5)
  1. UROREC [Concomitant]
     Active Substance: SILODOSIN
  2. BRILINTA [Suspect]
     Active Substance: TICAGRELOR
     Indication: MYOCARDIAL ISCHAEMIA
     Route: 048
     Dates: start: 201701, end: 20180321
  3. BETAHISTINE [Concomitant]
     Active Substance: BETAHISTINE
  4. BISOPROLOL [Concomitant]
     Active Substance: BISOPROLOL
  5. ASPIRIN. [Concomitant]
     Active Substance: ASPIRIN

REACTIONS (3)
  - Varicose vein [Not Recovered/Not Resolved]
  - Vascular stent stenosis [Recovered/Resolved]
  - Pain in extremity [Not Recovered/Not Resolved]

NARRATIVE: CASE EVENT DATE: 20170301
